FAERS Safety Report 23706092 (Version 7)
Quarter: 2025Q3

REPORT INFORMATION
  Report Type: Report from Study
  Country: CA (occurrence: CA)
  Receive Date: 20240404
  Receipt Date: 20250722
  Transmission Date: 20251021
  Serious: Yes (Other)
  Sender: SANOFI AVENTIS
  Company Number: CA-SA-SAC20230928001183

PATIENT
  Age: 65 Year
  Sex: Female

DRUGS (13)
  1. BELUMOSUDIL MESYLATE [Suspect]
     Active Substance: BELUMOSUDIL MESYLATE
     Indication: Chronic graft versus host disease
     Dosage: 200 MG, QOD
     Route: 048
  2. BELUMOSUDIL MESYLATE [Suspect]
     Active Substance: BELUMOSUDIL MESYLATE
     Dosage: 200 MG, QD
     Route: 048
     Dates: start: 20230630
  3. BIOTIN [Concomitant]
     Active Substance: BIOTIN
     Route: 048
  4. CALCIUM [Concomitant]
     Active Substance: CALCIUM
  5. CLOBETASOL [Concomitant]
     Active Substance: CLOBETASOL
  6. ESTRADIOL [Concomitant]
     Active Substance: ESTRADIOL
  7. FISH OIL [Concomitant]
     Active Substance: FISH OIL
  8. FOLIC ACID [Concomitant]
     Active Substance: FOLIC ACID
  9. MAGNESIUM GLUCONATE [Concomitant]
     Active Substance: MAGNESIUM GLUCONATE
  10. SEPTRA [Concomitant]
     Active Substance: SULFAMETHOXAZOLE\TRIMETHOPRIM
  11. VITAMIN D3 [Concomitant]
     Active Substance: CHOLECALCIFEROL
  12. RUXOLITINIB [Concomitant]
     Active Substance: RUXOLITINIB
     Dosage: 5 MG, QD
  13. VITAMINS NOS [Concomitant]
     Active Substance: VITAMINS

REACTIONS (16)
  - Graft versus host disease [Not Recovered/Not Resolved]
  - Condition aggravated [Not Recovered/Not Resolved]
  - Haematochezia [Recovered/Resolved]
  - Pain in extremity [Not Recovered/Not Resolved]
  - Pruritus [Recovered/Resolved]
  - Peripheral swelling [Recovered/Resolved]
  - Constipation [Recovered/Resolved]
  - Haemorrhoids [Recovering/Resolving]
  - Dyschezia [Recovered/Resolved]
  - Onychalgia [Not Recovered/Not Resolved]
  - Secretion discharge [Not Recovered/Not Resolved]
  - Nail disorder [Not Recovered/Not Resolved]
  - Oral pain [Recovering/Resolving]
  - Generalised oedema [Not Recovered/Not Resolved]
  - Drug ineffective [Unknown]
  - Inappropriate schedule of product administration [Unknown]

NARRATIVE: CASE EVENT DATE: 20231215
